FAERS Safety Report 13868803 (Version 1)
Quarter: 2017Q3

REPORT INFORMATION
  Report Type: Spontaneous
  Country: US (occurrence: US)
  Receive Date: 20170815
  Receipt Date: 20170815
  Transmission Date: 20171127
  Serious: No
  Sender: FDA-Public Use
  Company Number: US-PFIZER INC-2017351227

PATIENT
  Age: 50 Year
  Sex: Female
  Weight: 56.7 kg

DRUGS (1)
  1. EUCRISA [Suspect]
     Active Substance: CRISABOROLE
     Indication: ECZEMA EYELIDS
     Dosage: UNK
     Dates: start: 20170809, end: 20170810

REACTIONS (1)
  - Application site pain [Recovered/Resolved]

NARRATIVE: CASE EVENT DATE: 20170809
